FAERS Safety Report 4286110-0 (Version None)
Quarter: 2004Q1

REPORT INFORMATION
  Report Type: 
  Country: None (occurrence: None)
  Receive Date: 20040120
  Receipt Date: 20040120
  Transmission Date: 20041129
  Serious: Yes (Hospitalization)
  Sender: FDA-Public Use
  Company Number: ENZ-ABE-145

PATIENT
  Age: 24 Year
  Sex: Male
  Weight: 77 kg

DRUGS (9)
  1. ABELCET [Suspect]
     Dosage: IV
     Route: 042
     Dates: end: 20030911
  2. PREDNISONE [Concomitant]
  3. DOCUSATE [Concomitant]
  4. LIDOCAINE [Concomitant]
  5. INSULIN [Concomitant]
  6. TYLENOL (CAPLET) [Concomitant]
  7. MAGNESIUM [Concomitant]
  8. RABERPRAZOLE [Concomitant]
  9. LORAZEPAM [Concomitant]

REACTIONS (1)
  - HYPOKALAEMIA [None]
